FAERS Safety Report 11497819 (Version 2)
Quarter: 2016Q1

REPORT INFORMATION
  Report Type: Report from Study
  Country: JP (occurrence: JP)
  Receive Date: 20150911
  Receipt Date: 20160311
  Transmission Date: 20160525
  Serious: Yes (Other)
  Sender: FDA-Public Use
  Company Number: JP-009507513-1509JPN006036

PATIENT
  Age: 75 Year
  Sex: Male
  Weight: 59.2 kg

DRUGS (6)
  1. NU-LOTAN TABLET 50 [Concomitant]
     Active Substance: LOSARTAN
  2. JUVELA N [Concomitant]
     Active Substance: TOCOPHERYL NICOTINATE, D-.ALPHA.
     Dosage: UNK
     Dates: start: 20110930
  3. ACTOS [Concomitant]
     Active Substance: PIOGLITAZONE HYDROCHLORIDE
     Dosage: UNK
     Dates: end: 20110603
  4. METLIGINE [Concomitant]
     Active Substance: MIDODRINE HYDROCHLORIDE
  5. GLACTIV [Suspect]
     Active Substance: SITAGLIPTIN
     Indication: TYPE 2 DIABETES MELLITUS
     Dosage: 50 MG, QD
     Route: 048
     Dates: start: 20110304
  6. METHYCOBAL [Concomitant]
     Active Substance: METHYLCOBALAMIN
     Dosage: UNK
     Dates: start: 20110930

REACTIONS (1)
  - Dementia with Lewy bodies [Not Recovered/Not Resolved]

NARRATIVE: CASE EVENT DATE: 20121116
